FAERS Safety Report 8579911-1 (Version None)
Quarter: 2012Q3

REPORT INFORMATION
  Report Type: 
  Country: None (occurrence: None)
  Receive Date: 20120808
  Receipt Date: 20120730
  Transmission Date: 20120928
  Serious: No
  Sender: FDA-Public Use
  Company Number: US-ASTRAZENECA-2012SE54021

PATIENT
  Age: 40 Year
  Sex: Male
  Weight: 59 kg

DRUGS (4)
  1. XOPENEX HFA [Concomitant]
  2. PULMICORT FLEXHALER [Suspect]
     Indication: ASTHMA
     Route: 055
  3. FORADIL [Concomitant]
  4. AMOXICILLIN [Concomitant]

REACTIONS (26)
  - FEELING ABNORMAL [None]
  - NASAL DISCOMFORT [None]
  - ACTIVITIES OF DAILY LIVING IMPAIRED [None]
  - LIBIDO DECREASED [None]
  - COUGH [None]
  - CHEST PAIN [None]
  - HEADACHE [None]
  - INCREASED UPPER AIRWAY SECRETION [None]
  - HYPERHIDROSIS [None]
  - OFF LABEL USE [None]
  - SWELLING [None]
  - ABDOMINAL PAIN UPPER [None]
  - MIGRAINE [None]
  - ANXIETY [None]
  - ABNORMAL SENSATION IN EYE [None]
  - NAUSEA [None]
  - RHINORRHOEA [None]
  - WHEEZING [None]
  - WEIGHT DECREASED [None]
  - DYSPNOEA [None]
  - PYREXIA [None]
  - PRURITUS [None]
  - DECREASED APPETITE [None]
  - ASTHENIA [None]
  - CHILLS [None]
  - SOMNOLENCE [None]
